FAERS Safety Report 9863740 (Version 1)
Quarter: 2014Q1

REPORT INFORMATION
  Report Type: Spontaneous
  Country: US (occurrence: US)
  Receive Date: 20140203
  Receipt Date: 20140203
  Transmission Date: 20141002
  Serious: Yes (Other)
  Sender: FDA-Public Use
  Company Number: US-PFIZER INC-2014030504

PATIENT
  Age: 80 Year
  Sex: Female

DRUGS (1)
  1. LYRICA [Suspect]
     Indication: HERPES ZOSTER
     Dosage: 25 MG, 3X/DAY

REACTIONS (4)
  - Pain [Not Recovered/Not Resolved]
  - Musculoskeletal disorder [Unknown]
  - Dysstasia [Unknown]
  - Drug ineffective [Unknown]
